FAERS Safety Report 8737772 (Version 2)
Quarter: 2012Q4

REPORT INFORMATION
  Report Type: Report from Study
  Country: JP (occurrence: JP)
  Receive Date: 20120822
  Receipt Date: 20120929
  Transmission Date: 20130627
  Serious: Yes (Other)
  Sender: FDA-Public Use
  Company Number: JP-009507513-1208JPN003952

PATIENT
  Age: 52 Year
  Sex: Female
  Weight: 63 kg

DRUGS (9)
  1. PEGINTRON [Suspect]
     Indication: HEPATITIS C
     Dosage: 1.5 Microgram per kilogram, qw
     Route: 058
     Dates: start: 20120521, end: 20120604
  2. PEGINTRON [Suspect]
     Dosage: 1 Microgram per kilogram, qw
     Route: 058
     Dates: start: 20120611, end: 20120618
  3. PEGINTRON [Suspect]
     Dosage: 0.8 Microgram per kilogram, qw
     Route: 058
     Dates: start: 20120625
  4. REBETOL [Suspect]
     Indication: HEPATITIS C
     Dosage: 600 mg, qd
     Route: 048
     Dates: start: 20120521, end: 20120610
  5. REBETOL [Suspect]
     Dosage: 200 mg, qd
     Route: 048
     Dates: start: 20120611
  6. TELAVIC [Suspect]
     Indication: HEPATITIS C
     Dosage: 2250 mg, qd
     Route: 048
     Dates: start: 20120521, end: 20120610
  7. TELAVIC [Suspect]
     Dosage: 1500 mg, qd
     Route: 048
     Dates: start: 20120611, end: 20120702
  8. TELAVIC [Suspect]
     Dosage: 750 mg, qd
     Route: 048
     Dates: start: 20120703, end: 20120730
  9. TELAVIC [Suspect]
     Dosage: 1500 mg, qd
     Route: 048
     Dates: start: 20120731, end: 20120806

REACTIONS (8)
  - Nausea [Recovering/Resolving]
  - Pyrexia [Recovered/Resolved]
  - Vomiting [None]
  - Decreased appetite [None]
  - Headache [None]
  - Eczema [None]
  - Malaise [None]
  - Anaemia [None]
